FAERS Safety Report 9033806 (Version 1)
Quarter: 2013Q1

REPORT INFORMATION
  Report Type: Spontaneous
  Country: CA (occurrence: CA)
  Receive Date: 20130128
  Receipt Date: 20130128
  Transmission Date: 20140127
  Serious: Yes (Hospitalization)
  Sender: FDA-Public Use
  Company Number: CA-AMGEN-CANSP2012072182

PATIENT
  Age: 69 Year
  Sex: Female
  Weight: 52.27 kg

DRUGS (1)
  1. PROLIA [Suspect]
     Indication: OSTEOPOROSIS POSTMENOPAUSAL
     Dosage: UNK
     Dates: start: 20121105

REACTIONS (3)
  - Abdominal distension [Unknown]
  - Pain [Unknown]
  - Vomiting [Unknown]
